FAERS Safety Report 8385651-4 (Version None)
Quarter: 2012Q2

REPORT INFORMATION
  Report Type: 
  Country: None (occurrence: None)
  Receive Date: 20120523
  Receipt Date: 20120523
  Transmission Date: 20120825
  Serious: Yes (Other)
  Sender: FDA-Public Use
  Company Number: None

PATIENT
  Sex: Female
  Weight: 78.6 kg

DRUGS (2)
  1. METOPROLOL SUCCINATE [Suspect]
     Indication: CEREBROVASCULAR ACCIDENT
     Dosage: METOPROLOL ER SUCCINATE 25 MG 2X DAILY ORAL INGESTIN OF TABLET
     Route: 048
  2. METOPROLOL SUCCINATE [Suspect]
     Indication: ATRIAL FIBRILLATION
     Dosage: METOPROLOL ER SUCCINATE 25 MG 2X DAILY ORAL INGESTIN OF TABLET
     Route: 048

REACTIONS (11)
  - NO THERAPEUTIC RESPONSE [None]
  - ARTERIAL STENOSIS [None]
  - FEELING ABNORMAL [None]
  - ARTERIAL DISORDER [None]
  - NAUSEA [None]
  - TRANSIENT ISCHAEMIC ATTACK [None]
  - NIGHTMARE [None]
  - ABNORMAL DREAMS [None]
  - PAIN IN EXTREMITY [None]
  - HEADACHE [None]
  - HYPERTENSION [None]
